FAERS Safety Report 12878856 (Version 2)
Quarter: 2016Q4

REPORT INFORMATION
  Report Type: Spontaneous
  Country: US (occurrence: US)
  Receive Date: 20161024
  Receipt Date: 20161110
  Transmission Date: 20170207
  Serious: No
  Sender: FDA-Public Use
  Company Number: US-PFIZER INC-2016494718

PATIENT
  Age: 60 Year
  Sex: Male
  Weight: 72.57 kg

DRUGS (2)
  1. VIAGRA [Suspect]
     Active Substance: SILDENAFIL CITRATE
     Indication: SEXUAL DYSFUNCTION
     Dosage: 100 MG TAKE ONE TABLET BY MOUTH BEFORE MEAL AND ONE AND A HALF TO THREE HOURS BEFORE ACTION
     Route: 048
     Dates: start: 201610
  2. VIAGRA [Suspect]
     Active Substance: SILDENAFIL CITRATE
     Dosage: 50 MG (HALF OF 100 MG)
     Route: 048
     Dates: start: 201610

REACTIONS (4)
  - Sensation of blood flow [Unknown]
  - Intentional product use issue [Unknown]
  - Drug ineffective [Unknown]
  - Suspected counterfeit product [Unknown]

NARRATIVE: CASE EVENT DATE: 201610
